FAERS Safety Report 4779502-4 (Version None)
Quarter: 2005Q3

REPORT INFORMATION
  Report Type: 
  Country: None (occurrence: None)
  Receive Date: 20050923
  Receipt Date: 20050620
  Transmission Date: 20060218
  Serious: Yes (Hospitalization)
  Sender: FDA-Public Use
  Company Number: 05-000474

PATIENT
  Age: 29 Year
  Sex: Female
  Weight: 60.2 kg

DRUGS (3)
  1. DORYX [Suspect]
     Indication: PELVIC INFLAMMATORY DISEASE
     Dosage: ORAL
     Route: 048
     Dates: start: 20050525, end: 20050501
  2. CEFOTAN [Suspect]
     Indication: PELVIC INFLAMMATORY DISEASE
     Dosage: ORAL
     Route: 048
     Dates: start: 20050525, end: 20050603
  3. ESTROSTEP(NORETHISTERONE ACETATE, ETHINYLESTRADIOL) TABLET [Suspect]
     Dosage: 1 TAB, QD, ORAL
     Route: 048
     Dates: start: 20040731

REACTIONS (2)
  - EPIGASTRIC DISCOMFORT [None]
  - OESOPHAGEAL ULCER [None]
